FAERS Safety Report 11663467 (Version 1)
Quarter: 2015Q4

REPORT INFORMATION
  Report Type: Spontaneous
  Country: US (occurrence: None)
  Receive Date: 20151026
  Receipt Date: 20151026
  Transmission Date: 20160304
  Serious: Yes (Life-Threatening, Hospitalization, Disabling)
  Sender: FDA-Public Use
  Company Number: None

PATIENT
  Age: 53 Year
  Sex: Female
  Weight: 59.88 kg

DRUGS (1)
  1. NITROFURANTOIN MONOHYDRATE/MACROCRYSTALS [Suspect]
     Active Substance: NITROFURANTOIN\NITROFURANTOIN MONOHYDRATE
     Indication: URINARY TRACT INFECTION
     Dosage: BY MOUTH (PILL)
     Dates: start: 20150907, end: 20150915

REACTIONS (6)
  - Fatigue [None]
  - Hypoxia [None]
  - Pain [None]
  - Pyrexia [None]
  - Hepatic enzyme increased [None]
  - Interstitial lung disease [None]

NARRATIVE: CASE EVENT DATE: 20150915
